FAERS Safety Report 6539950-9 (Version None)
Quarter: 2010Q1

REPORT INFORMATION
  Report Type: 
  Country: None (occurrence: None)
  Receive Date: 20100115
  Receipt Date: 20100106
  Transmission Date: 20100710
  Serious: Yes (Hospitalization, Other)
  Sender: FDA-Public Use
  Company Number: US-ELI_LILLY_AND_COMPANY-US201001000939

PATIENT
  Sex: Male

DRUGS (13)
  1. FORTEO [Suspect]
     Indication: OSTEOPOROSIS
     Dosage: 20 U, DAILY (1/D)
     Dates: start: 20070101
  2. DRONEDARONE HCL [Concomitant]
     Dosage: 400 MG, 2/D
  3. DILTIAZEM [Concomitant]
     Dosage: 120 MG, 2/D
  4. LOVAZA [Concomitant]
     Dosage: 1 D/F, 2/D
  5. NEXIUM [Concomitant]
     Dosage: 40 MG, 2/D
  6. FLOVENT [Concomitant]
     Dosage: 220 U, 2/D
     Route: 055
  7. HYDROXYCHLOROQUINE SULFATE [Concomitant]
     Dosage: 200 MG, 2/D
  8. MELOXICAM [Concomitant]
     Dosage: 15 MG, DAILY (1/D)
  9. PROSCAR [Concomitant]
     Dosage: 5 MG, DAILY (1/D)
  10. DOXYCYCLINE [Concomitant]
     Dosage: 50 MG, 2/D
  11. BACLOFEN [Concomitant]
     Dosage: 10 MG, AS NEEDED
  12. TESTOSTERONE [Concomitant]
     Dosage: 1 D/F, UNK
  13. ANALGESICS [Concomitant]
     Indication: PAIN

REACTIONS (2)
  - CHONDROMATOSIS [None]
  - SHOULDER OPERATION [None]
